FAERS Safety Report 5485988-2 (Version None)
Quarter: 2007Q4

REPORT INFORMATION
  Report Type: 
  Country: None (occurrence: None)
  Receive Date: 20071015
  Receipt Date: 20071012
  Transmission Date: 20080405
  Serious: Yes (Hospitalization)
  Sender: FDA-Public Use
  Company Number: CH-MERCK-0710CHE00016

PATIENT
  Age: 55 Year
  Sex: Female
  Weight: 60 kg

DRUGS (4)
  1. SINGULAIR [Suspect]
     Indication: ASTHMA
     Route: 048
     Dates: start: 20060508, end: 20060802
  2. ASPIRIN [Suspect]
     Indication: RETINAL VASCULAR OCCLUSION
     Route: 048
     Dates: start: 20060512
  3. RISEDRONATE SODIUM [Concomitant]
     Route: 065
  4. CALCIUM CARBONATE AND CHOLECALCIFEROL [Concomitant]
     Route: 065

REACTIONS (1)
  - HAEMORRHAGIC STROKE [None]
